FAERS Safety Report 15630748 (Version 6)
Quarter: 2019Q2

REPORT INFORMATION
  Report Type: Report from Study
  Country: None (occurrence: US)
  Receive Date: 20181119
  Receipt Date: 20190409
  Transmission Date: 20190711
  Serious: Yes (Other)
  Sender: FDA-Public Use
  Company Number: US-ABBVIE-18K-163-2421295-00

PATIENT
  Age: 70 Year
  Sex: Male
  Weight: 127.12 kg

DRUGS (3)
  1. HUMIRA [Suspect]
     Active Substance: ADALIMUMAB
     Indication: RHEUMATOID ARTHRITIS
     Route: 058
  2. AMOXICILLIN. [Concomitant]
     Active Substance: AMOXICILLIN
     Indication: TOOTH EXTRACTION
     Dosage: FOR 30 DAYS
     Dates: start: 20190109
  3. GLIMEPIRIDE. [Suspect]
     Active Substance: GLIMEPIRIDE
     Indication: DIABETES MELLITUS
     Route: 065

REACTIONS (19)
  - Red blood cell macrocytes present [Not Recovered/Not Resolved]
  - Skin ulcer [Recovering/Resolving]
  - Asthenia [Recovering/Resolving]
  - Diabetes mellitus [Not Recovered/Not Resolved]
  - Nerve compression [Unknown]
  - Neuralgia [Unknown]
  - Pollakiuria [Not Recovered/Not Resolved]
  - Impaired healing [Recovering/Resolving]
  - Tooth extraction [Recovered/Resolved]
  - Somnolence [Unknown]
  - Obesity [Unknown]
  - Arthralgia [Recovered/Resolved]
  - Arthralgia [Not Recovered/Not Resolved]
  - Anaemia [Not Recovered/Not Resolved]
  - Splenomegaly [Not Recovered/Not Resolved]
  - Peripheral swelling [Recovering/Resolving]
  - Vein disorder [Unknown]
  - Cardiovascular disorder [Unknown]
  - Hepatomegaly [Not Recovered/Not Resolved]

NARRATIVE: CASE EVENT DATE: 2017
